FAERS Safety Report 25104809 (Version 1)
Quarter: 2025Q1

REPORT INFORMATION
  Report Type: Spontaneous
  Country: MA (occurrence: MA)
  Receive Date: 20250321
  Receipt Date: 20250321
  Transmission Date: 20250409
  Serious: Yes (Hospitalization, Other)
  Sender: CADILA
  Company Number: MA-CPL-005140

PATIENT
  Age: 18 Year
  Sex: Male

DRUGS (3)
  1. METRONIDAZOLE [Suspect]
     Active Substance: METRONIDAZOLE
     Indication: Tooth abscess
  2. SPIRAMYCIN [Suspect]
     Active Substance: SPIRAMYCIN
     Indication: Tooth abscess
  3. SULFASALAZINE [Concomitant]
     Active Substance: SULFASALAZINE
     Indication: Crohn^s disease
     Dosage: 3 G DAILY

REACTIONS (1)
  - Acute generalised exanthematous pustulosis [Recovered/Resolved]
